FAERS Safety Report 13894092 (Version 1)
Quarter: 2017Q3

REPORT INFORMATION
  Report Type: Spontaneous
  Country: BR (occurrence: BR)
  Receive Date: 20170822
  Receipt Date: 20170822
  Transmission Date: 20171127
  Serious: Yes (Other)
  Sender: FDA-Public Use
  Company Number: BR-ABBVIE-17P-020-2077825-00

PATIENT
  Age: 67 Year
  Sex: Female
  Weight: 105 kg

DRUGS (4)
  1. FLUOXETINE HYDROCHLORIDE. [Concomitant]
     Active Substance: FLUOXETINE HYDROCHLORIDE
     Indication: ANTIDEPRESSANT THERAPY
     Route: 048
  2. DEPAKENE [Suspect]
     Active Substance: VALPROIC ACID
     Indication: ABNORMAL BEHAVIOUR
     Route: 048
     Dates: start: 201705
  3. RIVOTRIL [Concomitant]
     Active Substance: CLONAZEPAM
     Indication: NERVOUSNESS
  4. RIVOTRIL [Concomitant]
     Active Substance: CLONAZEPAM
     Indication: ANXIETY
     Route: 048

REACTIONS (11)
  - Product use in unapproved indication [Unknown]
  - Anxiety [Unknown]
  - Social avoidant behaviour [Unknown]
  - Crying [Unknown]
  - Suicidal ideation [Unknown]
  - Depressed mood [Unknown]
  - Nervousness [Unknown]
  - Psychiatric symptom [Unknown]
  - Derealisation [Unknown]
  - Nightmare [Unknown]
  - Emotional distress [Unknown]
